FAERS Safety Report 7808798-7 (Version None)
Quarter: 2011Q4

REPORT INFORMATION
  Report Type: 
  Country: None (occurrence: None)
  Receive Date: 20111012
  Receipt Date: 20111003
  Transmission Date: 20120403
  Serious: Yes (Other)
  Sender: FDA-Public Use
  Company Number: PHEH2009US00900

PATIENT
  Sex: Male
  Weight: 91.791 kg

DRUGS (20)
  1. LIPITOR [Concomitant]
     Dates: start: 20060101
  2. MORPHINE [Concomitant]
     Dates: start: 20070101, end: 20070101
  3. WARFARIN SODIUM [Concomitant]
     Indication: ANTICOAGULANT THERAPY
     Dosage: 2 MG, QHS
     Dates: start: 20070608
  4. REVLIMID [Concomitant]
     Indication: MULTIPLE MYELOMA
     Dosage: 25 MG, QW3
     Dates: start: 20060701
  5. CLINDAMYCIN [Concomitant]
     Dosage: 300 MG, TID
     Dates: start: 20061201
  6. CHEMOTHERAPEUTICS NOS [Concomitant]
     Dates: start: 20060401
  7. THALIDOMIDE [Concomitant]
     Dosage: 200 MG, QD
     Dates: start: 20030401, end: 20060601
  8. OMEPRAZOLE [Concomitant]
  9. VITAMIN B6 [Concomitant]
     Indication: NEUROPATHY PERIPHERAL
     Dates: start: 20060501
  10. DEXAMETHASONE [Concomitant]
     Indication: MULTIPLE MYELOMA
     Dosage: 4 MG, 10 TABS Q SAT
     Dates: start: 20070607
  11. PLAVIX [Concomitant]
  12. TRIMETHOPRIM [Concomitant]
     Indication: ANTIBIOTIC PROPHYLAXIS
     Dosage: 1 DF, BID
     Dates: start: 20070622
  13. OXYCODONE HCL [Concomitant]
     Indication: PAIN
     Dosage: 40 MG, PRN
     Dates: start: 20070101
  14. VITAMINS NOS [Concomitant]
     Dates: start: 20030101
  15. OXYCODONE HCL [Concomitant]
     Dosage: 5 MG 1-2 CAP Q 2-3 HR PRN
     Dates: start: 20070101
  16. ZOMETA [Suspect]
     Indication: MULTIPLE MYELOMA
     Dosage: 4 MG, QMO
     Route: 042
     Dates: start: 20030301, end: 20061001
  17. ATENOLOL [Concomitant]
     Dosage: 25 MG,
     Dates: start: 20000401
  18. XANAX [Concomitant]
  19. PRAVACHOL [Concomitant]
     Dates: start: 20000101, end: 20060101
  20. ASPIRIN [Concomitant]
     Indication: ANTICOAGULANT THERAPY
     Dosage: 325 MG,
     Dates: start: 20001101

REACTIONS (26)
  - OPEN WOUND [None]
  - SWELLING FACE [None]
  - OSTEOLYSIS [None]
  - BLOODY DISCHARGE [None]
  - HYPERCHOLESTEROLAEMIA [None]
  - ANXIETY [None]
  - RECTAL HAEMORRHAGE [None]
  - NEUROPATHY PERIPHERAL [None]
  - BLOOD PRESSURE INCREASED [None]
  - SWELLING [None]
  - PLASMACYTOSIS [None]
  - CHEST PAIN [None]
  - TOOTH LOSS [None]
  - INJURY [None]
  - HYPOAESTHESIA [None]
  - INFECTION [None]
  - ANHEDONIA [None]
  - BONE DISORDER [None]
  - HAEMORRHOIDS [None]
  - CONSTIPATION [None]
  - BONE PAIN [None]
  - ARTERIAL DISORDER [None]
  - PARAESTHESIA [None]
  - OSTEONECROSIS OF JAW [None]
  - PAIN [None]
  - ANAEMIA [None]
